FAERS Safety Report 11177972 (Version 1)
Quarter: 2015Q2

REPORT INFORMATION
  Report Type: Spontaneous
  Country: US (occurrence: None)
  Receive Date: 20150515
  Receipt Date: 20150515
  Transmission Date: 20150821
  Serious: Yes (Other)
  Sender: FDA-Public Use
  Company Number: 2015001678

PATIENT
  Age: 57 Year
  Sex: Female

DRUGS (8)
  1. FOLIC ACID. [Concomitant]
     Active Substance: FOLIC ACID
  2. METHOTREXATE [Concomitant]
     Active Substance: METHOTREXATE
  3. VITAMIN D3 [Concomitant]
     Active Substance: CHOLECALCIFEROL
  4. CALCIUM [Concomitant]
     Active Substance: CALCIUM
  5. CIMZIA [Suspect]
     Active Substance: CERTOLIZUMAB PEGOL
     Indication: RHEUMATOID ARTHRITIS
     Route: 058
     Dates: start: 201305
  6. PREDNISONE (PREDNISONE ACETATE) [Concomitant]
  7. NUCYNTA (TAPENTADOL HYDROCHLORIDE) [Concomitant]
  8. COREG [Concomitant]
     Active Substance: CARVEDILOL

REACTIONS (1)
  - Psoriasis [None]

NARRATIVE: CASE EVENT DATE: 2013
